FAERS Safety Report 19280322 (Version 1)
Quarter: 2021Q2

REPORT INFORMATION
  Report Type: Report from Study
  Country: US (occurrence: US)
  Receive Date: 20210520
  Receipt Date: 20210520
  Transmission Date: 20210717
  Serious: Yes (Other)
  Sender: FDA-Public Use
  Company Number: US-EMD SERONO-E2B_80048733

PATIENT
  Age: 48 Year
  Sex: Female

DRUGS (12)
  1. REBIF [Suspect]
     Active Substance: INTERFERON BETA-1A
     Route: 058
     Dates: start: 20070703, end: 20161001
  2. COVID?19 VACCINE (JOHNSON AND JOHNSON) [Concomitant]
     Indication: COVID-19 IMMUNISATION
     Dates: start: 20210506
  3. REBIF [Suspect]
     Active Substance: INTERFERON BETA-1A
     Indication: MULTIPLE SCLEROSIS
     Dosage: PEVIOUSLY: REBIJECT II
     Route: 058
     Dates: start: 2002
  4. TIZANIDINE. [Concomitant]
     Active Substance: TIZANIDINE
     Indication: PRODUCT USED FOR UNKNOWN INDICATION
  5. BACLOFEN. [Concomitant]
     Active Substance: BACLOFEN
     Indication: PRODUCT USED FOR UNKNOWN INDICATION
  6. HYDROCHLOROTHIAZIDE. [Concomitant]
     Active Substance: HYDROCHLOROTHIAZIDE
     Indication: PRODUCT USED FOR UNKNOWN INDICATION
  7. ATORVASTATIN [Concomitant]
     Active Substance: ATORVASTATIN
     Indication: PRODUCT USED FOR UNKNOWN INDICATION
  8. ANASTROZOLE. [Concomitant]
     Active Substance: ANASTROZOLE
     Indication: PRODUCT USED FOR UNKNOWN INDICATION
  9. REBIF [Suspect]
     Active Substance: INTERFERON BETA-1A
     Dosage: PEVIOUSLY: REBIJECT II
     Route: 058
  10. GABAPENTIN. [Concomitant]
     Active Substance: GABAPENTIN
     Indication: PRODUCT USED FOR UNKNOWN INDICATION
  11. REBIF [Suspect]
     Active Substance: INTERFERON BETA-1A
     Dosage: PEVIOUSLY: REBIJECT II
     Route: 058
     Dates: start: 20170208
  12. VENLAFAXINE [Concomitant]
     Active Substance: VENLAFAXINE HYDROCHLORIDE
     Indication: PRODUCT USED FOR UNKNOWN INDICATION

REACTIONS (14)
  - White blood cell count decreased [Not Recovered/Not Resolved]
  - Blood calcium increased [Unknown]
  - Neutropenia [Recovered/Resolved]
  - Injection site necrosis [Recovered/Resolved]
  - Seroma [Not Recovered/Not Resolved]
  - Vomiting [Unknown]
  - Weight decreased [Unknown]
  - Breast cancer stage II [Recovered/Resolved]
  - Needle issue [Unknown]
  - Blood potassium decreased [Recovered/Resolved]
  - Platelet count decreased [Recovered/Resolved]
  - Injection site scar [Unknown]
  - Ageusia [Unknown]
  - Red blood cell count decreased [Not Recovered/Not Resolved]

NARRATIVE: CASE EVENT DATE: 2010
